FAERS Safety Report 19880896 (Version 1)
Quarter: 2021Q3

REPORT INFORMATION
  Report Type: Spontaneous
  Country: US (occurrence: US)
  Receive Date: 20210925
  Receipt Date: 20210925
  Transmission Date: 20211014
  Serious: No
  Sender: FDA-Public Use
  Company Number: NVSC2021US217770

PATIENT
  Sex: Female

DRUGS (3)
  1. OCTREOTIDE. [Suspect]
     Active Substance: OCTREOTIDE
  2. OCTREOTIDE. [Suspect]
     Active Substance: OCTREOTIDE
  3. OCTREOTIDE. [Suspect]
     Active Substance: OCTREOTIDE
     Indication: ACROMEGALY
     Route: 065

REACTIONS (1)
  - Diarrhoea [Unknown]
